FAERS Safety Report 7467409-3 (Version None)
Quarter: 2011Q2

REPORT INFORMATION
  Report Type: 
  Country: None (occurrence: None)
  Receive Date: 20110509
  Receipt Date: 20101215
  Transmission Date: 20111010
  Serious: No
  Sender: FDA-Public Use
  Company Number: US-ALEXION-A201001618

PATIENT
  Sex: Male

DRUGS (2)
  1. SOLIRIS [Suspect]
     Indication: PAROXYSMAL NOCTURNAL HAEMOGLOBINURIA
     Dosage: UNK
     Route: 042
     Dates: start: 20100827, end: 20100101
  2. SOLIRIS [Suspect]
     Dosage: 900 MG, Q2W
     Route: 042
     Dates: start: 20100101

REACTIONS (6)
  - EYE DISCHARGE [None]
  - INFLUENZA [None]
  - OCULAR HYPERAEMIA [None]
  - EYE DISORDER [None]
  - PRODUCTIVE COUGH [None]
  - RHINORRHOEA [None]
